FAERS Safety Report 4300876-2 (Version None)
Quarter: 2004Q1

REPORT INFORMATION
  Report Type: 
  Country: None (occurrence: None)
  Receive Date: 20040219
  Receipt Date: 20040203
  Transmission Date: 20041129
  Serious: Yes (Hospitalization)
  Sender: FDA-Public Use
  Company Number: DSA_23958_2004

PATIENT
  Age: 50 Year
  Sex: Male

DRUGS (2)
  1. ENALAPRIL MALEATE [Suspect]
     Dosage: 5 MG QD PO
     Route: 048
     Dates: start: 20030701, end: 20030701
  2. IRBESARTAN/HCTZ [Suspect]
     Dates: start: 20030501

REACTIONS (3)
  - DERMATITIS EXFOLIATIVE [None]
  - DRUG ERUPTION [None]
  - DRUG INTERACTION [None]
